FAERS Safety Report 4454455-7 (Version None)
Quarter: 2004Q3

REPORT INFORMATION
  Report Type: 
  Country: None (occurrence: None)
  Receive Date: 20040917
  Receipt Date: 20040917
  Transmission Date: 20050211
  Serious: Yes (Hospitalization, Disabling)
  Sender: FDA-Public Use
  Company Number: None

PATIENT
  Sex: Male
  Weight: 68.0396 kg

DRUGS (1)
  1. GENTAMICIN [Suspect]
     Indication: OSTEOMYELITIS
     Dosage: 10 DAYS

REACTIONS (1)
  - HYPERBARIC OXYGEN THERAPY [None]
